FAERS Safety Report 6564876-4 (Version None)
Quarter: 2010Q1

REPORT INFORMATION
  Report Type: 
  Country: None (occurrence: None)
  Receive Date: 20100201
  Receipt Date: 20100122
  Transmission Date: 20100710
  Serious: Yes (Other)
  Sender: FDA-Public Use
  Company Number: FR-JNJFOC-20100109788

PATIENT
  Sex: Female

DRUGS (2)
  1. REMICADE [Suspect]
     Indication: RHEUMATOID ARTHRITIS
     Dosage: 2ND DOSE
     Route: 042
  2. REMICADE [Suspect]
     Dosage: 1ST DOSE
     Route: 042

REACTIONS (3)
  - HYPERSENSITIVITY [None]
  - RESPIRATORY DISORDER [None]
  - TACHYCARDIA [None]
